FAERS Safety Report 8002606-X (Version None)
Quarter: 2011Q4

REPORT INFORMATION
  Report Type: 
  Country: None (occurrence: None)
  Receive Date: 20111222
  Receipt Date: 20111215
  Transmission Date: 20120403
  Serious: Yes (Other)
  Sender: FDA-Public Use
  Company Number: BR-GLAXOSMITHKLINE-A0958697A

PATIENT
  Sex: Male
  Weight: 90 kg

DRUGS (2)
  1. FLUTICASONE PROPIONATE/SALMETEROL [Suspect]
     Indication: ASTHMA
     Dosage: 2PUFF PER DAY
     Route: 065
     Dates: start: 20111001, end: 20111215
  2. SPIRIVA [Concomitant]
     Dosage: 2PUFF PER DAY
     Dates: start: 20101001

REACTIONS (10)
  - WEIGHT INCREASED [None]
  - MUSCLE SPASMS [None]
  - ASTHENIA [None]
  - IMPAIRED DRIVING ABILITY [None]
  - PRODUCT QUALITY ISSUE [None]
  - MUSCLE DISORDER [None]
  - GAIT DISTURBANCE [None]
  - MUSCULAR WEAKNESS [None]
  - MYALGIA [None]
  - HEMIPLEGIA [None]
